FAERS Safety Report 9387185 (Version 1)
Quarter: 2013Q3

REPORT INFORMATION
  Report Type: Spontaneous
  Country: US (occurrence: None)
  Receive Date: 20130703
  Receipt Date: 20130703
  Transmission Date: 20140515
  Serious: Yes (Hospitalization)
  Sender: FDA-Public Use
  Company Number: None

PATIENT
  Age: 75 Year
  Sex: Female
  Weight: 83.92 kg

DRUGS (1)
  1. PRADAXA MADE GERMANY + ITALY [Suspect]
     Indication: ANTICOAGULANT THERAPY
     Dosage: 6/21 150 MG 60 CAPSULE ONE MOUTH
     Route: 048

REACTIONS (2)
  - Fall [None]
  - Cerebral haemorrhage [None]
